FAERS Safety Report 10538344 (Version 10)
Quarter: 2015Q3

REPORT INFORMATION
  Report Type: Report from Study
  Country: GT (occurrence: GT)
  Receive Date: 20141023
  Receipt Date: 20150820
  Transmission Date: 20151125
  Serious: Yes (Life-Threatening, Disabling, Other)
  Sender: FDA-Public Use
  Company Number: PHHY2014GT138611

PATIENT
  Age: 57 Year
  Sex: Female
  Weight: 66.21 kg

DRUGS (5)
  1. GILENYA [Suspect]
     Active Substance: FINGOLIMOD HYDROCHLORIDE
     Indication: MULTIPLE SCLEROSIS
     Dosage: 0.5 MG, QD
     Route: 048
     Dates: start: 2014
  2. JANUVIA [Concomitant]
     Active Substance: SITAGLIPTIN PHOSPHATE
     Indication: PRODUCT USED FOR UNKNOWN INDICATION
     Dosage: UNK
     Route: 065
  3. INSULIN [Concomitant]
     Active Substance: INSULIN NOS
     Indication: DIABETES MELLITUS
     Dosage: UNK
     Route: 065
  4. DIAMICRON [Concomitant]
     Active Substance: GLICLAZIDE
     Indication: PRODUCT USED FOR UNKNOWN INDICATION
     Dosage: UNK
     Route: 065
  5. ATACAND [Concomitant]
     Active Substance: CANDESARTAN CILEXETIL
     Indication: PRODUCT USED FOR UNKNOWN INDICATION
     Dosage: UNK
     Route: 065

REACTIONS (36)
  - Emphysema [Not Recovered/Not Resolved]
  - Cyanosis [Unknown]
  - Memory impairment [Unknown]
  - Gamma-glutamyltransferase increased [Recovered/Resolved]
  - Bronchial hyperreactivity [Recovered/Resolved]
  - Lymphocyte count decreased [Recovered/Resolved]
  - Dyspnoea [Recovered/Resolved]
  - Asthmatic crisis [Unknown]
  - Blood glucose increased [Unknown]
  - Arthropathy [Unknown]
  - Visual acuity reduced [Unknown]
  - Bronchitis [Not Recovered/Not Resolved]
  - Red blood cell count increased [Recovered/Resolved]
  - Haemoglobin increased [Recovered/Resolved]
  - Eosinophil count increased [Recovered/Resolved]
  - White blood cell count decreased [Recovered/Resolved]
  - Productive cough [Unknown]
  - Wheezing [Recovered/Resolved]
  - Blood pressure increased [Recovering/Resolving]
  - Hearing impaired [Unknown]
  - Monocyte count increased [Recovered/Resolved]
  - Haematocrit increased [Recovered/Resolved]
  - Muscular weakness [Unknown]
  - Basophil percentage increased [Recovered/Resolved]
  - Chills [Recovered/Resolved]
  - Fall [Recovered/Resolved]
  - Meniscus injury [Recovered/Resolved]
  - Visual impairment [Unknown]
  - Dyspnoea exertional [Recovered/Resolved]
  - Pyrexia [Recovered/Resolved]
  - Fatigue [Unknown]
  - Neutrophil count decreased [Recovered/Resolved]
  - Limb discomfort [Unknown]
  - Blood glucose increased [Recovered/Resolved]
  - Self injurious behaviour [Recovered/Resolved]
  - Ear infection [Unknown]

NARRATIVE: CASE EVENT DATE: 20140605
